FAERS Safety Report 8473882-4 (Version None)
Quarter: 2012Q2

REPORT INFORMATION
  Report Type: 
  Country: None (occurrence: None)
  Receive Date: 20120628
  Receipt Date: 20120516
  Transmission Date: 20120825
  Serious: Yes (Other)
  Sender: FDA-Public Use
  Company Number: US-MYLANLABS-2012S1000838

PATIENT
  Age: 52 Year
  Sex: Female
  Weight: 51.26 kg

DRUGS (6)
  1. COGENTIN [Concomitant]
     Dosage: 1 TABLET QAM ,2 TABLETS QHS
  2. CLOZAPINE [Suspect]
     Route: 048
  3. CLOZAPINE [Suspect]
     Indication: SCHIZOPHRENIA
     Route: 048
     Dates: start: 20091208
  4. CLOZAPINE [Suspect]
     Route: 048
     Dates: end: 20120327
  5. KLONOPIN [Concomitant]
     Indication: ANXIETY DISORDER
  6. LUVOX [Concomitant]

REACTIONS (3)
  - LEUKOPENIA [None]
  - NEUTROPHIL COUNT ABNORMAL [None]
  - GRANULOCYTOPENIA [None]
